FAERS Safety Report 4991449-7 (Version None)
Quarter: 2006Q2

REPORT INFORMATION
  Report Type: 
  Country: None (occurrence: None)
  Receive Date: 20060504
  Receipt Date: 20060414
  Transmission Date: 20061013
  Serious: Yes (Hospitalization)
  Sender: FDA-Public Use
  Company Number: 2006UW06638

PATIENT
  Sex: Male
  Weight: 71.4 kg

DRUGS (5)
  1. IRESSA [Suspect]
     Indication: PANCREATIC CARCINOMA
     Dosage: 40 PILLS
     Route: 048
     Dates: start: 20060404, end: 20060412
  2. GEMZAR [Concomitant]
     Indication: PANCREATIC CARCINOMA
     Route: 042
  3. NEUPOGEN [Concomitant]
     Dosage: 3-4 TIMES A WEEK
     Route: 058
  4. ARANESP [Concomitant]
     Dosage: EVERY OTHER WEEK
  5. KEFLEX [Concomitant]
     Indication: SWELLING

REACTIONS (2)
  - CELLULITIS [None]
  - DISEASE PROGRESSION [None]
